FAERS Safety Report 9311052 (Version 1)
Quarter: 2013Q2

REPORT INFORMATION
  Report Type: Spontaneous
  Country: US (occurrence: US)
  Receive Date: 20130528
  Receipt Date: 20130528
  Transmission Date: 20140414
  Serious: No
  Sender: FDA-Public Use
  Company Number: US-PFIZER INC-2013160257

PATIENT
  Age: 33 Year
  Sex: Female
  Weight: 118 kg

DRUGS (1)
  1. LEVOXYL [Suspect]
     Indication: THYROID HORMONE REPLACEMENT THERAPY
     Dosage: 50 UG, 1X/DAY
     Route: 048
     Dates: start: 200701, end: 201305

REACTIONS (2)
  - Drug dose omission [Unknown]
  - Mood swings [Recovered/Resolved]
